FAERS Safety Report 9523949 (Version 1)
Quarter: 2013Q1

REPORT INFORMATION
  Report Type: Spontaneous
  Country: US (occurrence: None)
  Receive Date: 20130305
  Receipt Date: 20130305
  Transmission Date: 20140127
  Serious: Yes (Other)
  Sender: FDA-Public Use
  Company Number: 163-21880-12063773

PATIENT
  Age: 59 Year
  Sex: Male
  Weight: 83.92 kg

DRUGS (11)
  1. REVLIMID [Suspect]
     Indication: HODGKIN^S DISEASE
     Dosage: 5 MG, 1 IN 1 D, PO
     Route: 048
     Dates: start: 201201
  2. FLONASE (FLUTICASONE PROPIONATE) (UNKNOWN) [Concomitant]
  3. FLUOXETINE (FLUOXETINE) (UNKNOWN) [Concomitant]
  4. ASPIRIN (ACETYLSALICYLIC ACID) (UNKNOWN) (ACETYLSALICYLIC ACID) [Concomitant]
  5. COQ-10 (UBIDECARENONE) (UNKNOWN) [Concomitant]
  6. GLUCOSAMINE AND CHONDROITIN (JORIX) (UNKNOWN) [Concomitant]
  7. IBUPROFEN (IBUPROFEN) (UNKNOWN) [Concomitant]
  8. MULTIVITAMIN (MULTIVITAMINS) (UNKNOWN) [Concomitant]
  9. VALACYCLOVIR (VALACICLOVIR HYDROCHLORIDE) (UNKNOWN)? [Concomitant]
  10. VITAMIN B COMPLEX (B-KOMPLEX ^LECIVA^) (UNKNOWN) [Concomitant]
  11. VITAMIN C [Concomitant]

REACTIONS (3)
  - Diarrhoea [None]
  - Fatigue [None]
  - Nausea [None]
